FAERS Safety Report 18746424 (Version 2)
Quarter: 2021Q1

REPORT INFORMATION
  Report Type: Other
  Country: CN (occurrence: CN)
  Receive Date: 20210115
  Receipt Date: 20210120
  Transmission Date: 20210419
  Serious: Yes (Other)
  Sender: FDA-Public Use
  Company Number: CN-ROCHE-2749666

PATIENT
  Age: 73 Year
  Sex: Male

DRUGS (2)
  1. ACTILYSE [Suspect]
     Active Substance: ALTEPLASE
     Route: 042
  2. ACTILYSE [Suspect]
     Active Substance: ALTEPLASE
     Indication: ANTERIOR SPINAL ARTERY SYNDROME
     Route: 042

REACTIONS (3)
  - Anterior spinal artery syndrome [Recovering/Resolving]
  - Off label use [Unknown]
  - Intentional product use issue [Unknown]
